FAERS Safety Report 7824886-3 (Version None)
Quarter: 2011Q4

REPORT INFORMATION
  Report Type: 
  Country: None (occurrence: None)
  Receive Date: 20111019
  Receipt Date: 20110311
  Transmission Date: 20120403
  Serious: No
  Sender: FDA-Public Use
  Company Number: US-BRISTOL-MYERS SQUIBB COMPANY-15554389

PATIENT
  Age: 36 Year
  Sex: Female

DRUGS (1)
  1. AVALIDE [Suspect]
     Indication: HYPERTENSION
     Dosage: FOR ABOUT 7 OR 8 YEARS 1 DF = 300/12.5 UNITS NOS

REACTIONS (1)
  - BLOOD PRESSURE INCREASED [None]
